FAERS Safety Report 6907059-8 (Version None)
Quarter: 2010Q3

REPORT INFORMATION
  Report Type: 
  Country: None (occurrence: None)
  Receive Date: 20100804
  Receipt Date: 20080617
  Transmission Date: 20110219
  Serious: Yes (Other)
  Sender: FDA-Public Use
  Company Number: US-PFIZER INC-2008033482

PATIENT
  Sex: Male
  Weight: 76.2 kg

DRUGS (7)
  1. MARAVIROC [Suspect]
     Indication: HIV TEST POSITIVE
     Dosage: FREQUENCY: BID; INTERVAL: DAILY
     Route: 048
     Dates: start: 20051222
  2. FLUCONAZOLE [Concomitant]
     Route: 048
     Dates: start: 20010101
  3. SULFAMETHOXAZOLE AND TRIMETHOPRIM [Concomitant]
     Route: 048
     Dates: start: 20010101
  4. AZITHROMYCIN [Concomitant]
     Route: 048
     Dates: start: 20010101
  5. VALACYCLOVIR [Concomitant]
     Route: 048
     Dates: start: 20040101
  6. PREVACID [Concomitant]
     Route: 048
     Dates: start: 20010101
  7. SOMATROPIN [Concomitant]
     Route: 058
     Dates: start: 20040101

REACTIONS (1)
  - ANAL CANCER [None]
